FAERS Safety Report 5529035-2 (Version None)
Quarter: 2007Q4

REPORT INFORMATION
  Report Type: 
  Country: None (occurrence: None)
  Receive Date: 20071129
  Receipt Date: 20060411
  Transmission Date: 20080405
  Serious: Yes (Other)
  Sender: FDA-Public Use
  Company Number: US-AVENTIS-200613388US

PATIENT
  Age: 75 Year

DRUGS (1)
  1. LOVENOX [Suspect]
     Dosage: DOSE: UNK, AT 8 HOURS AND 32 HOURS POST-OP

REACTIONS (3)
  - EXTRADURAL HAEMATOMA [None]
  - HAEMORRHAGE [None]
  - PARALYSIS [None]
